FAERS Safety Report 17731539 (Version 4)
Quarter: 2022Q2

REPORT INFORMATION
  Report Type: Spontaneous
  Country: US (occurrence: US)
  Receive Date: 20200430
  Receipt Date: 20220422
  Transmission Date: 20220721
  Serious: Yes (Death, Other)
  Sender: FDA-Public Use
  Company Number: US-TAKEDA-2020TUS020755

PATIENT

DRUGS (9)
  1. PREVACID [Suspect]
     Active Substance: LANSOPRAZOLE
     Indication: Gastrooesophageal reflux disease
     Dosage: UNK
     Route: 048
     Dates: start: 200601, end: 201612
  2. PREVACID [Suspect]
     Active Substance: LANSOPRAZOLE
     Indication: Peptic ulcer
     Dosage: UNK
     Route: 048
     Dates: start: 2006, end: 2016
  3. PREVACID [Suspect]
     Active Substance: LANSOPRAZOLE
     Indication: Hiatus hernia
  4. PROTONIX [Suspect]
     Active Substance: PANTOPRAZOLE SODIUM
     Indication: Gastrooesophageal reflux disease
     Dosage: UNK
     Route: 048
     Dates: start: 200601, end: 201612
  5. PROTONIX [Suspect]
     Active Substance: PANTOPRAZOLE SODIUM
     Indication: Peptic ulcer
     Dosage: UNK
     Route: 048
     Dates: start: 2006, end: 2016
  6. PROTONIX [Suspect]
     Active Substance: PANTOPRAZOLE SODIUM
     Indication: Hiatus hernia
  7. NEXIUM [Suspect]
     Active Substance: ESOMEPRAZOLE MAGNESIUM
     Indication: Gastrooesophageal reflux disease
     Dosage: UNK
     Route: 048
     Dates: start: 200601, end: 201612
  8. NEXIUM [Suspect]
     Active Substance: ESOMEPRAZOLE MAGNESIUM
     Indication: Peptic ulcer
     Dosage: UNK
     Route: 048
     Dates: start: 2006, end: 2016
  9. NEXIUM [Suspect]
     Active Substance: ESOMEPRAZOLE MAGNESIUM
     Indication: Hiatus hernia

REACTIONS (3)
  - Chronic kidney disease [Fatal]
  - Cardiac arrest [Fatal]
  - Hypoxic-ischaemic encephalopathy [Fatal]

NARRATIVE: CASE EVENT DATE: 20100101
